FAERS Safety Report 8570437-8 (Version None)
Quarter: 2012Q3

REPORT INFORMATION
  Report Type: 
  Country: None (occurrence: None)
  Receive Date: 20120803
  Receipt Date: 20120727
  Transmission Date: 20120928
  Serious: Yes (Hospitalization)
  Sender: FDA-Public Use
  Company Number: US-ASTRAZENECA-2012SE40282

PATIENT
  Age: 55 Year
  Sex: Female
  Weight: 117.9 kg

DRUGS (8)
  1. SYMBICORT [Suspect]
     Indication: FUNGAL INFECTION
     Dosage: 160/4.5, TWO PUFFS TWO TIMES A DAY
     Route: 055
     Dates: start: 20120424
  2. ALBUTEROL SULFATE AUTOHALER [Concomitant]
  3. NEXIUM [Suspect]
     Indication: GASTROOESOPHAGEAL REFLUX DISEASE
     Route: 048
  4. LEVOXYL [Concomitant]
     Indication: HYPOTHYROIDISM
     Route: 048
  5. SINGULAIR [Concomitant]
     Route: 048
  6. SYMBICORT [Suspect]
     Indication: PULMONARY OEDEMA
     Dosage: 160/4.5, TWO PUFFS TWO TIMES A DAY
     Route: 055
     Dates: start: 20120424
  7. SYMBICORT [Suspect]
     Indication: ASTHMA
     Dosage: 160/4.5, TWO PUFFS TWO TIMES A DAY
     Route: 055
     Dates: start: 20120424
  8. DIOVAN [Concomitant]
     Indication: HYPERTENSION
     Route: 048

REACTIONS (5)
  - OFF LABEL USE [None]
  - FUNGAL INFECTION [None]
  - EXPOSURE TO MOULD [None]
  - PULMONARY OEDEMA [None]
  - DRUG INEFFECTIVE FOR UNAPPROVED INDICATION [None]
